FAERS Safety Report 18746759 (Version 3)
Quarter: 2021Q2

REPORT INFORMATION
  Report Type: Spontaneous
  Country: GB (occurrence: GB)
  Receive Date: 20210115
  Receipt Date: 20210622
  Transmission Date: 20210717
  Serious: Yes (Death, Other)
  Sender: FDA-Public Use
  Company Number: PHHY2018GB187437

PATIENT
  Age: 61 Year
  Sex: Female

DRUGS (45)
  1. CAPECITABINE. [Suspect]
     Active Substance: CAPECITABINE
     Indication: BREAST CANCER METASTATIC
     Dosage: 3000 MG, QD (1500MG, BID)
     Route: 048
  2. CAPECITABINE. [Suspect]
     Active Substance: CAPECITABINE
     Dosage: 6000 MG, QD (3000MG , BID)
     Route: 048
     Dates: start: 20170210, end: 20170728
  3. PERTUZUMAB. [Suspect]
     Active Substance: PERTUZUMAB
     Dosage: 840 MILLIGRAM, Q3W (1 DF) LOADING DOSE
     Route: 042
  4. TRASTUZUMAB EMTANSINE [Suspect]
     Active Substance: ADO-TRASTUZUMAB EMTANSINE
     Indication: HER2 POSITIVE BREAST CANCER
     Dosage: 140 MG, Q3W
     Route: 042
     Dates: start: 20160215, end: 20160215
  5. GENTAMICIN. [Concomitant]
     Active Substance: GENTAMICIN
     Indication: LOWER RESPIRATORY TRACT INFECTION
     Dosage: UNK
     Route: 042
     Dates: start: 20170213, end: 201702
  6. TAZOCIN [Concomitant]
     Active Substance: PIPERACILLIN SODIUM\TAZOBACTAM SODIUM
     Indication: LOWER RESPIRATORY TRACT INFECTION
     Dosage: UNK
     Route: 042
     Dates: start: 20170213, end: 20170215
  7. DOCETAXEL. [Suspect]
     Active Substance: DOCETAXEL
     Indication: BREAST CANCER METASTATIC
     Dosage: 108 MG, Q3W(DOSE MODIFIED)
     Route: 042
     Dates: start: 20150602, end: 20150602
  8. TRASTUZUMAB EMTANSINE [Suspect]
     Active Substance: ADO-TRASTUZUMAB EMTANSINE
     Indication: BREAST CANCER METASTATIC
     Dosage: 172 MG, Q3W
     Route: 042
     Dates: start: 20151201, end: 20151221
  9. TRASTUZUMAB. [Suspect]
     Active Substance: TRASTUZUMAB
     Dosage: UNK, Q3W
     Route: 042
  10. ERIBULIN MESILATE [Suspect]
     Active Substance: ERIBULIN
     Dosage: UNK
     Route: 042
  11. ERIBULIN MESILATE [Suspect]
     Active Substance: ERIBULIN
     Dosage: 1.5 MG, Q3W
     Route: 042
  12. MUPIROCIN. [Concomitant]
     Active Substance: MUPIROCIN
     Dosage: 6 %, QD
     Route: 061
     Dates: start: 20160620, end: 20160624
  13. DOCETAXEL. [Suspect]
     Active Substance: DOCETAXEL
     Indication: BREAST CANCER
     Dosage: 80 MG
     Route: 065
     Dates: start: 20150629
  14. VINORELBINE [Suspect]
     Active Substance: VINORELBINE TARTRATE
     Indication: HER2 POSITIVE BREAST CANCER
     Dosage: 60 MG
     Route: 048
     Dates: start: 20180530, end: 20180608
  15. TRASTUZUMAB. [Suspect]
     Active Substance: TRASTUZUMAB
     Dosage: UNK UNK, Q3W(DOSE REDUCED)
     Route: 042
  16. SANDO K [Concomitant]
     Indication: NUTRITIONAL SUPPLEMENTATION
     Dosage: 2 DF, QD
     Route: 048
     Dates: start: 20150828, end: 20150830
  17. PERTUZUMAB. [Suspect]
     Active Substance: PERTUZUMAB
     Indication: HER2 POSITIVE BREAST CANCER
     Dosage: 420 MG, Q3W(TARGETED THERAPY)
     Route: 042
     Dates: start: 20150622, end: 20151102
  18. TRASTUZUMAB. [Suspect]
     Active Substance: TRASTUZUMAB
     Dosage: 300 MG, Q3W(DOSE MODIFIED)
     Route: 042
     Dates: start: 20150629, end: 20151102
  19. TRASTUZUMAB. [Suspect]
     Active Substance: TRASTUZUMAB
     Dosage: 172 MG, Q3W
     Route: 042
     Dates: start: 20151201, end: 20151221
  20. MEROPENEM. [Concomitant]
     Active Substance: MEROPENEM
     Indication: LOWER RESPIRATORY TRACT INFECTION
     Dosage: UNK
     Route: 042
     Dates: start: 20170215, end: 20170221
  21. DOMPERIDONE [Concomitant]
     Active Substance: DOMPERIDONE
     Dosage: 30 MG, QD
     Route: 048
     Dates: start: 20160406, end: 20160421
  22. FILGRASTIM [Concomitant]
     Active Substance: FILGRASTIM
     Indication: PRODUCT USED FOR UNKNOWN INDICATION
     Dosage: 300 UG, UNK(EVERY DAY FOR 3 DAYS STARTING ON DAYS 3 AND 11)
     Route: 058
     Dates: start: 20160421, end: 20160712
  23. CIPROFLOXACIN. [Concomitant]
     Active Substance: CIPROFLOXACIN
     Indication: PRODUCT USED FOR UNKNOWN INDICATION
     Dosage: 500 MG, QD
     Route: 048
     Dates: start: 20151218, end: 20151225
  24. VINORELBINE [Suspect]
     Active Substance: VINORELBINE TARTRATE
     Indication: BREAST CANCER METASTATIC
     Dosage: 60 MG
     Route: 048
     Dates: start: 20180608, end: 20180810
  25. PERTUZUMAB. [Suspect]
     Active Substance: PERTUZUMAB
     Dosage: DOSAGE FORM, Q3W, UNK, Q3WK, DOSE REDUCED
     Route: 042
  26. TRASTUZUMAB. [Suspect]
     Active Substance: TRASTUZUMAB
     Dosage: 140 MG, Q3W
     Route: 042
     Dates: start: 20151201, end: 20151221
  27. NERATINIB [Suspect]
     Active Substance: NERATINIB
     Indication: HER2 POSITIVE BREAST CANCER
     Dosage: 40 MG, QD
     Route: 048
     Dates: start: 20170901, end: 20180314
  28. NERATINIB [Suspect]
     Active Substance: NERATINIB
     Dosage: 240 MG, QD
     Route: 048
     Dates: start: 20170901, end: 20180216
  29. NERATINIB [Suspect]
     Active Substance: NERATINIB
     Dosage: UNK
     Route: 048
  30. CO?AMOXICLAV [Concomitant]
     Active Substance: AMOXICILLIN\CLAVULANATE POTASSIUM
     Indication: LOWER RESPIRATORY TRACT INFECTION
     Dosage: 625 MG, QD
     Route: 048
     Dates: start: 20170222, end: 20170228
  31. VINORELBINE [Suspect]
     Active Substance: VINORELBINE TARTRATE
     Dosage: 60 MG
     Route: 048
     Dates: start: 20180503, end: 20180608
  32. CAPECITABINE. [Suspect]
     Active Substance: CAPECITABINE
     Indication: HER2 POSITIVE BREAST CANCER
     Dosage: 3000 MG, QD
     Route: 048
     Dates: start: 20170210, end: 20170728
  33. TRASTUZUMAB EMTANSINE [Suspect]
     Active Substance: ADO-TRASTUZUMAB EMTANSINE
     Dosage: 140 MG, Q3W
     Route: 042
     Dates: start: 20151201, end: 20160215
  34. TRASTUZUMAB. [Suspect]
     Active Substance: TRASTUZUMAB
     Indication: HER2 POSITIVE BREAST CANCER
     Dosage: 350 MG, UNK(LOADING DOSE)
     Route: 042
     Dates: start: 20150601
  35. TRASTUZUMAB. [Suspect]
     Active Substance: TRASTUZUMAB
     Dosage: 140 MG, Q3W
     Route: 042
     Dates: start: 20160215, end: 20160215
  36. ERIBULIN MESILATE [Suspect]
     Active Substance: ERIBULIN
     Indication: HER2 POSITIVE BREAST CANCER
     Dosage: 1.5 MG, Q3W
     Route: 042
     Dates: start: 20160411, end: 20160624
  37. DOMPERIDONE [Concomitant]
     Active Substance: DOMPERIDONE
     Indication: PRODUCT USED FOR UNKNOWN INDICATION
     Dosage: 10 MG, QD
     Route: 048
     Dates: start: 20160406, end: 20160421
  38. CIPROFLOXACIN. [Concomitant]
     Active Substance: CIPROFLOXACIN
     Dosage: 1000 MG, QD
     Route: 048
     Dates: start: 20151218, end: 20151225
  39. CO?AMOXICLAV [Concomitant]
     Active Substance: AMOXICILLIN\CLAVULANATE POTASSIUM
     Dosage: 1875 MG, QD
     Route: 048
     Dates: start: 20170222, end: 20170228
  40. FILGRASTIM [Concomitant]
     Active Substance: FILGRASTIM
     Dosage: 300 UG, QD
     Route: 058
     Dates: start: 20150725, end: 20150730
  41. DOCETAXEL. [Suspect]
     Active Substance: DOCETAXEL
     Dosage: 86 MG, Q3W(DOSE DISCONTINUED)
     Route: 042
     Dates: start: 20150629, end: 20150720
  42. CAPECITABINE. [Suspect]
     Active Substance: CAPECITABINE
     Dosage: 1500 MG, QD
     Route: 048
     Dates: start: 20170210, end: 20170728
  43. NERATINIB [Suspect]
     Active Substance: NERATINIB
     Dosage: 240 MG, QD
     Route: 048
     Dates: start: 20180223, end: 20180402
  44. MUPIROCIN. [Concomitant]
     Active Substance: MUPIROCIN
     Indication: PROPHYLAXIS
     Dosage: 2 %, QD
     Route: 061
     Dates: start: 20160620, end: 20160624
  45. AMLODIPINE [Concomitant]
     Active Substance: AMLODIPINE BESYLATE
     Indication: PRODUCT USED FOR UNKNOWN INDICATION
     Dosage: 10 MG
     Route: 048

REACTIONS (32)
  - Colitis [Not Recovered/Not Resolved]
  - Weight decreased [Not Recovered/Not Resolved]
  - Cough [Recovered/Resolved]
  - Dyspepsia [Recovered/Resolved]
  - Rash pruritic [Recovered/Resolved]
  - Hypoaesthesia [Unknown]
  - Decreased appetite [Not Recovered/Not Resolved]
  - Dyspepsia [Unknown]
  - Intentional product misuse [Unknown]
  - Disease progression [Fatal]
  - Folate deficiency [Recovered/Resolved]
  - Off label use [Unknown]
  - Mucosal inflammation [Recovered/Resolved]
  - Pyrexia [Recovered/Resolved]
  - Tremor [Unknown]
  - Thrombocytopenia [Not Recovered/Not Resolved]
  - Throat irritation [Not Recovered/Not Resolved]
  - Dysphonia [Recovering/Resolving]
  - Fatigue [Recovered/Resolved]
  - Alopecia [Not Recovered/Not Resolved]
  - Diarrhoea [Recovered/Resolved]
  - Odynophagia [Not Recovered/Not Resolved]
  - Fatigue [Recovered/Resolved]
  - Alopecia [Not Recovered/Not Resolved]
  - Neuropathy peripheral [Recovering/Resolving]
  - Hyperchlorhydria [Recovered/Resolved]
  - Product use issue [Unknown]
  - Pancytopenia [Not Recovered/Not Resolved]
  - Lethargy [Not Recovered/Not Resolved]
  - Neutropenia [Not Recovered/Not Resolved]
  - Tremor [Recovered/Resolved]
  - Palpitations [Unknown]

NARRATIVE: CASE EVENT DATE: 20150601
